FAERS Safety Report 14955938 (Version 3)
Quarter: 2020Q3

REPORT INFORMATION
  Report Type: Other
  Country: ES (occurrence: ES)
  Receive Date: 20180531
  Receipt Date: 20200827
  Transmission Date: 20201102
  Serious: Yes (Life-Threatening, Hospitalization, Other)
  Sender: FDA-Public Use
  Company Number: ES-MACLEODS PHARMACEUTICALS US LTD-MAC2018013911

PATIENT

DRUGS (10)
  1. QUETIAPINE 25MG TABLET [Suspect]
     Active Substance: QUETIAPINE
     Indication: RESTLESSNESS
     Dosage: 25 MILLIGRAM, QD, 12.5 MG IN TWO SEPRATE DOSES, OF FIXED FORM IN THE DINNERS/MEALS
     Route: 065
  2. FLOMAX [Suspect]
     Active Substance: TAMSULOSIN HYDROCHLORIDE
     Indication: PRODUCT USED FOR UNKNOWN INDICATION
     Dosage: 0.4 MILLIGRAM
     Route: 065
  3. SPIRIVA [Suspect]
     Active Substance: TIOTROPIUM BROMIDE MONOHYDRATE
     Indication: PRODUCT USED FOR UNKNOWN INDICATION
     Dosage: 18 MICROGRAM, QD, IHALATION/DAY
     Route: 055
  4. CLONAZEPAM. [Suspect]
     Active Substance: CLONAZEPAM
     Dosage: 0.13 MILLIGRAM, QD
     Route: 065
  5. CLONAZEPAM. [Suspect]
     Active Substance: CLONAZEPAM
     Indication: PRODUCT USED FOR UNKNOWN INDICATION
     Dosage: 0.13 MILLIGRAM, QD
     Route: 065
  6. DONEPEZIL. [Interacting]
     Active Substance: DONEPEZIL
     Indication: PRODUCT USED FOR UNKNOWN INDICATION
     Dosage: 10 MILLIGRAM, QD, 24 HOURS
     Route: 065
  7. CLONAZEPAM. [Suspect]
     Active Substance: CLONAZEPAM
     Dosage: 0.125 MILLIGRAM
     Route: 065
  8. OXYGEN. [Concomitant]
     Active Substance: OXYGEN
     Indication: BRONCHITIS CHRONIC
     Dosage: UNK
     Route: 065
  9. OLANZAPINE. [Interacting]
     Active Substance: OLANZAPINE
     Indication: PRODUCT USED FOR UNKNOWN INDICATION
     Dosage: 2.5 MILLIGRAM, QD
     Route: 065
  10. OLANZAPINE. [Interacting]
     Active Substance: OLANZAPINE
     Dosage: 5 MILLIGRAM, QD, 2.5 MG BD, 12 HOUR
     Route: 065

REACTIONS (17)
  - Muscle rigidity [Recovered/Resolved]
  - Respiratory failure [Recovered/Resolved]
  - Hypophagia [Recovered/Resolved]
  - Respiratory tract infection [Recovered/Resolved]
  - Hypertension [Recovered/Resolved]
  - Product use in unapproved indication [Unknown]
  - Off label use [Unknown]
  - Neuroleptic malignant syndrome [Recovered/Resolved]
  - Drug interaction [Unknown]
  - Depressed level of consciousness [Recovered/Resolved]
  - Acute kidney injury [Recovered/Resolved]
  - Hyperhidrosis [Recovered/Resolved]
  - Tachycardia [Recovered/Resolved]
  - Pyrexia [Recovered/Resolved]
  - Tremor [Recovered/Resolved]
  - Condition aggravated [Recovered/Resolved]
  - Myoclonus [Recovered/Resolved]
